FAERS Safety Report 10340549 (Version 1)
Quarter: 2014Q3

REPORT INFORMATION
  Report Type: Spontaneous
  Country: US (occurrence: None)
  Receive Date: 20140722
  Receipt Date: 20140722
  Transmission Date: 20150326
  Serious: Yes (Other)
  Sender: FDA-Public Use
  Company Number: TPU2014-00177

PATIENT
  Sex: Female

DRUGS (1)
  1. LIDODERM [Suspect]
     Active Substance: LIDOCAINE
     Indication: BACK PAIN
     Dosage: 1-3 PATCHES, TOPICAL
     Route: 061

REACTIONS (2)
  - Thrombosis [None]
  - Drug ineffective [None]

NARRATIVE: CASE EVENT DATE: 2014
